FAERS Safety Report 15680857 (Version 1)
Quarter: 2018Q4

REPORT INFORMATION
  Report Type: Spontaneous
  Country: US (occurrence: US)
  Receive Date: 20181120
  Receipt Date: 20181120
  Transmission Date: 20190205
  Serious: Yes (Hospitalization)
  Sender: FDA-Public Use
  Company Number: None

PATIENT
  Age: 19 Year
  Sex: Male

DRUGS (2)
  1. DIPHENHYDRAMINE 50MG IM [Concomitant]
     Dates: start: 20181016, end: 20181016
  2. HALOPERIDOL INJECTION 10MG 2ML VIAL [Suspect]
     Active Substance: HALOPERIDOL
     Indication: AGITATION
     Dosage: ?          OTHER FREQUENCY:STAT;?
     Route: 030
     Dates: start: 20181016, end: 20181016

REACTIONS (2)
  - Swollen tongue [None]
  - Dyspnoea [None]

NARRATIVE: CASE EVENT DATE: 20181018
